FAERS Safety Report 5731400-5 (Version None)
Quarter: 2008Q2

REPORT INFORMATION
  Report Type: 
  Country: None (occurrence: None)
  Receive Date: 20080506
  Receipt Date: 20080506
  Transmission Date: 20081010
  Serious: Yes (Hospitalization)
  Sender: FDA-Public Use
  Company Number: None

PATIENT
  Sex: Male
  Weight: 81.3 kg

DRUGS (1)
  1. CISPLATIN [Suspect]
     Dosage: 365 MG
     Dates: end: 20080402

REACTIONS (6)
  - CATHETER SITE INFECTION [None]
  - DIARRHOEA [None]
  - FEBRILE NEUTROPENIA [None]
  - HYPONATRAEMIA [None]
  - PNEUMONIA [None]
  - PSEUDOMONAS INFECTION [None]
